FAERS Safety Report 10470383 (Version 1)
Quarter: 2014Q3

REPORT INFORMATION
  Report Type: Spontaneous
  Country: FR (occurrence: FR)
  Receive Date: 20140923
  Receipt Date: 20140923
  Transmission Date: 20150326
  Serious: Yes (Hospitalization)
  Sender: FDA-Public Use
  Company Number: FR-SA-2014SA128014

PATIENT
  Age: 35 Year
  Sex: Female

DRUGS (4)
  1. TAXOTERE [Suspect]
     Active Substance: DOCETAXEL
     Route: 065
     Dates: start: 20140703, end: 20140703
  2. CYCLOPHOSPHAMIDE. [Concomitant]
     Active Substance: CYCLOPHOSPHAMIDE
  3. FLUOROURACIL. [Concomitant]
     Active Substance: FLUOROURACIL
  4. EPIRUBICIN [Concomitant]
     Active Substance: EPIRUBICIN

REACTIONS (4)
  - Inflammatory marker increased [Recovered/Resolved]
  - Pyrexia [Recovered/Resolved]
  - Cholestasis [Recovered/Resolved]
  - Hepatocellular injury [Recovered/Resolved]

NARRATIVE: CASE EVENT DATE: 20140712
